FAERS Safety Report 10120196 (Version 1)
Quarter: 2014Q2

REPORT INFORMATION
  Report Type: Report from Study
  Country: BR (occurrence: BR)
  Receive Date: 20140426
  Receipt Date: 20140426
  Transmission Date: 20141212
  Serious: Yes (Other)
  Sender: FDA-Public Use
  Company Number: PHHY2014BR050722

PATIENT
  Sex: Female
  Weight: 52 kg

DRUGS (4)
  1. ACLASTA [Suspect]
     Indication: OSTEOPOROSIS
     Dosage: ONCE A YEAR
     Route: 042
  2. DIOVAN [Concomitant]
     Indication: HYPERTENSION
     Dosage: 1 DF, DAILY
  3. NUTRICAL D [Concomitant]
     Indication: OSTEOPOROSIS
     Dosage: 1 DF, DAILY
  4. LANZOPRAZOL [Concomitant]
     Indication: GASTROOESOPHAGEAL REFLUX DISEASE
     Dosage: 1 DF, DAILY

REACTIONS (1)
  - Renal cyst [Not Recovered/Not Resolved]
